FAERS Safety Report 4779938-1 (Version None)
Quarter: 2005Q3

REPORT INFORMATION
  Report Type: 
  Country: None (occurrence: None)
  Receive Date: 20050927
  Receipt Date: 20050919
  Transmission Date: 20060218
  Serious: Yes (Hospitalization)
  Sender: FDA-Public Use
  Company Number: US-GLAXOSMITHKLINE-A0574800A

PATIENT
  Age: 85 Year
  Sex: Female

DRUGS (6)
  1. AVANDIA [Suspect]
     Route: 065
  2. GLIPIZIDE [Concomitant]
  3. HEART MEDICATION [Concomitant]
  4. COUMADIN [Concomitant]
  5. LIPITOR [Concomitant]
  6. PLAVIX [Concomitant]

REACTIONS (2)
  - CHEST PAIN [None]
  - HYPOXIA [None]
